FAERS Safety Report 6059230-8 (Version None)
Quarter: 2009Q1

REPORT INFORMATION
  Report Type: 
  Country: None (occurrence: None)
  Receive Date: 20090130
  Receipt Date: 20090107
  Transmission Date: 20090719
  Serious: Yes (Hospitalization)
  Sender: FDA-Public Use
  Company Number: JP-MERCK-0901USA01050

PATIENT
  Age: 34 Year
  Sex: Female

DRUGS (2)
  1. DECADRON [Suspect]
     Indication: ADRENOGENITAL SYNDROME
     Route: 048
     Dates: start: 19710101
  2. FLORINEF [Suspect]
     Indication: ADRENOGENITAL SYNDROME
     Route: 048
     Dates: start: 19710101

REACTIONS (1)
  - FAT NECROSIS [None]
